FAERS Safety Report 14609980 (Version 1)
Quarter: 2018Q1

REPORT INFORMATION
  Report Type: Spontaneous
  Country: US (occurrence: US)
  Receive Date: 20180307
  Receipt Date: 20180307
  Transmission Date: 20180509
  Serious: No
  Sender: FDA-Public Use
  Company Number: None

PATIENT
  Age: 68 Year
  Sex: Female

DRUGS (1)
  1. MYCOPHENOLATE [Suspect]
     Active Substance: MYCOPHENOLIC ACID

REACTIONS (10)
  - Arthralgia [None]
  - Nausea [None]
  - Myalgia [None]
  - Palpitations [None]
  - Abdominal pain upper [None]
  - Chest pain [None]
  - Product substitution issue [None]
  - Chest discomfort [None]
  - Eye pain [None]
  - Headache [None]
